FAERS Safety Report 8491364-0 (Version None)
Quarter: 2012Q3

REPORT INFORMATION
  Report Type: 
  Country: None (occurrence: None)
  Receive Date: 20120706
  Receipt Date: 20120704
  Transmission Date: 20120928
  Serious: Yes (Other)
  Sender: FDA-Public Use
  Company Number: PHHY2012NL029584

PATIENT
  Sex: Female
  Weight: 67 kg

DRUGS (3)
  1. ALVESCO [Concomitant]
     Dosage: 160 UG, UNK
  2. ALBUTEROL SULATE [Concomitant]
     Dosage: 100 UG, UNK
  3. TRILEPTAL [Suspect]
     Indication: EPILEPSY
     Dosage: 300 MG, BID
     Dates: start: 20111103

REACTIONS (9)
  - HYPOKINESIA [None]
  - EXPRESSIVE LANGUAGE DISORDER [None]
  - HYPERPHAGIA [None]
  - AFFECT LABILITY [None]
  - MALAISE [None]
  - FALL [None]
  - SUICIDAL IDEATION [None]
  - NAUSEA [None]
  - FATIGUE [None]
